FAERS Safety Report 4800768-6 (Version None)
Quarter: 2005Q4

REPORT INFORMATION
  Report Type: 
  Country: None (occurrence: None)
  Receive Date: 20051017
  Receipt Date: 20050927
  Transmission Date: 20060501
  Serious: Yes (Hospitalization)
  Sender: FDA-Public Use
  Company Number: US-MERCK-0509USA04612

PATIENT
  Age: 67 Year
  Sex: Female
  Weight: 118 kg

DRUGS (17)
  1. OS-CAL [Concomitant]
     Route: 065
  2. OSTEO-BI-FLEX [Concomitant]
     Route: 065
  3. CENTRUM SILVER [Concomitant]
     Route: 065
  4. ALEVE [Concomitant]
     Route: 065
  5. VIOXX [Suspect]
     Indication: ARTHRITIS
     Route: 048
     Dates: start: 20011001, end: 20040101
  6. LEVOXYL [Concomitant]
     Route: 065
  7. PREVACID [Concomitant]
     Route: 065
  8. FOSAMAX [Concomitant]
     Route: 065
  9. LANTUS [Concomitant]
     Route: 065
  10. HUMALOG [Concomitant]
     Route: 065
  11. NOVOLOG [Concomitant]
     Route: 065
  12. CHLORTHALIDONE [Concomitant]
     Route: 065
  13. PLAVIX [Concomitant]
     Route: 065
  14. GLUCOPHAGE [Concomitant]
     Route: 065
  15. ACCUPRIL [Concomitant]
     Route: 065
  16. ATENOLOL MSD [Concomitant]
     Route: 065
  17. OS-CAL [Concomitant]
     Route: 065

REACTIONS (6)
  - ARTERIAL OCCLUSIVE DISEASE [None]
  - ARTHROPATHY [None]
  - BACK PAIN [None]
  - CORONARY ARTERY OCCLUSION [None]
  - EYE DISORDER [None]
  - UTERINE DISORDER [None]
